FAERS Safety Report 23372318 (Version 1)
Quarter: 2024Q1

REPORT INFORMATION
  Report Type: Spontaneous
  Country: CN (occurrence: CN)
  Receive Date: 20240105
  Receipt Date: 20240105
  Transmission Date: 20240409
  Serious: Yes (Other)
  Sender: FDA-Public Use
  Company Number: CN-PFIZER INC-PV202300210421

PATIENT
  Age: 71 Year
  Weight: 55 kg

DRUGS (1)
  1. LINEZOLID [Suspect]
     Active Substance: LINEZOLID
     Indication: Brain abscess
     Dosage: 600 MG, 2X/DAY
     Route: 048
     Dates: start: 20230918, end: 20231010

REACTIONS (3)
  - Platelet count decreased [Recovered/Resolved]
  - Tongue discolouration [Recovered/Resolved]
  - Gingival discolouration [Recovered/Resolved]

NARRATIVE: CASE EVENT DATE: 20231010
